FAERS Safety Report 8773980 (Version 1)
Quarter: 2012Q4

REPORT INFORMATION
  Report Type: 
  Country: US (occurrence: US)
  Receive Date: 20120907
  Receipt Date: 20120907
  Transmission Date: 20130627
  Serious: No
  Sender: FDA-Public Use
  Company Number: US-PFIZER INC-2012217792

PATIENT
  Age: 83 Year
  Sex: Female
  Weight: 72.56 kg

DRUGS (3)
  1. PROTONIX [Suspect]
     Indication: ABDOMINAL PAIN UPPER
     Dosage: 40 mg, 1x/day
     Route: 048
  2. FERROUS SULPHATE [Concomitant]
     Dosage: UNK, 2x/day
  3. LASIX [Concomitant]
     Indication: URINARY TRACT DISORDER
     Dosage: UNK

REACTIONS (4)
  - Stress [Not Recovered/Not Resolved]
  - Gastric disorder [Not Recovered/Not Resolved]
  - Cardiac disorder [Not Recovered/Not Resolved]
  - Malaise [Not Recovered/Not Resolved]
